FAERS Safety Report 6316113-3 (Version None)
Quarter: 2009Q3

REPORT INFORMATION
  Report Type: 
  Country: None (occurrence: None)
  Receive Date: 20090820
  Receipt Date: 20090812
  Transmission Date: 20100115
  Serious: Yes (Hospitalization)
  Sender: FDA-Public Use
  Company Number: PHHY2009CN33896

PATIENT
  Age: 35 Year
  Sex: Female

DRUGS (2)
  1. CARBAMAZEPINE [Suspect]
     Indication: HEADACHE
     Dosage: UNK
     Route: 048
     Dates: start: 20060825
  2. ORYZANOL [Concomitant]

REACTIONS (11)
  - BLISTER [None]
  - CONJUNCTIVAL ULCER [None]
  - DYSPHORIA [None]
  - DYSPNOEA [None]
  - ERYTHEMA MULTIFORME [None]
  - LIP EROSION [None]
  - OEDEMA [None]
  - ORAL MUCOSA EROSION [None]
  - PAIN [None]
  - PRURITUS [None]
  - RASH MACULO-PAPULAR [None]
